FAERS Safety Report 6391977-6 (Version None)
Quarter: 2009Q4

REPORT INFORMATION
  Report Type: 
  Country: None (occurrence: None)
  Receive Date: 20091007
  Receipt Date: 20091002
  Transmission Date: 20100525
  Serious: Yes (Hospitalization)
  Sender: FDA-Public Use
  Company Number: B0587279A

PATIENT
  Age: 61 Year
  Sex: Female

DRUGS (7)
  1. TYKERB [Suspect]
     Indication: BREAST CANCER
     Route: 048
     Dates: start: 20090703
  2. XELODA [Suspect]
     Indication: DRUG USE FOR UNKNOWN INDICATION
     Route: 048
     Dates: start: 20090703
  3. CELESTAMINE TAB [Concomitant]
     Route: 048
     Dates: start: 20090716
  4. PYDOXAL [Concomitant]
     Route: 048
     Dates: start: 20090716
  5. UNKNOWN DRUG [Concomitant]
     Route: 048
     Dates: start: 20090716
  6. LIDOMEX [Concomitant]
     Route: 061
     Dates: start: 20090716
  7. WHITE PETROLATUM [Concomitant]
     Route: 061
     Dates: start: 20090716

REACTIONS (3)
  - HEPATIC FUNCTION ABNORMAL [None]
  - PARONYCHIA [None]
  - RASH ERYTHEMATOUS [None]
